FAERS Safety Report 19193467 (Version 5)
Quarter: 2021Q4

REPORT INFORMATION
  Report Type: Report from Study
  Country: DO (occurrence: DO)
  Receive Date: 20210428
  Receipt Date: 20211108
  Transmission Date: 20220304
  Serious: Yes (Disabling, Other)
  Sender: FDA-Public Use
  Company Number: DO-ABBVIE-21K-279-3877907-00

PATIENT
  Sex: Female
  Weight: 63 kg

DRUGS (1)
  1. HUMIRA [Suspect]
     Active Substance: ADALIMUMAB
     Indication: Rheumatoid arthritis
     Route: 058
     Dates: start: 20170731, end: 20210315

REACTIONS (13)
  - Mobility decreased [Not Recovered/Not Resolved]
  - Rheumatoid arthritis [Not Recovered/Not Resolved]
  - Overweight [Recovering/Resolving]
  - Skin ulcer [Not Recovered/Not Resolved]
  - Ulcer [Recovering/Resolving]
  - Anaemia [Not Recovered/Not Resolved]
  - Blister [Recovering/Resolving]
  - Blister [Not Recovered/Not Resolved]
  - Pruritus [Unknown]
  - Pruritus [Recovering/Resolving]
  - Pain of skin [Unknown]
  - Pain [Recovering/Resolving]
  - Unevaluable event [Unknown]

NARRATIVE: CASE EVENT DATE: 20180101
